FAERS Safety Report 17577894 (Version 2)
Quarter: 2020Q2

REPORT INFORMATION
  Report Type: Report from Study
  Country: GB (occurrence: GB)
  Receive Date: 20200324
  Receipt Date: 20200402
  Transmission Date: 20200713
  Serious: Yes (Other)
  Sender: FDA-Public Use
  Company Number: GB-UCBSA-2020011807

PATIENT
  Age: 37 Year
  Sex: Male

DRUGS (2)
  1. LAMOTRIGINE. [Suspect]
     Active Substance: LAMOTRIGINE
     Indication: EPILEPSY
     Dosage: UNK
  2. BRIVARACETAM [Suspect]
     Active Substance: BRIVARACETAM
     Indication: EPILEPSY
     Dosage: 75 MILLIGRAM, 2X/DAY (BID)
     Route: 048
     Dates: start: 20180503

REACTIONS (3)
  - Suicidal ideation [Not Recovered/Not Resolved]
  - Seizure [Recovering/Resolving]
  - Depression [Not Recovered/Not Resolved]

NARRATIVE: CASE EVENT DATE: 201911
